FAERS Safety Report 8072225-8 (Version None)
Quarter: 2012Q1

REPORT INFORMATION
  Report Type: 
  Country: None (occurrence: None)
  Receive Date: 20120126
  Receipt Date: 20120123
  Transmission Date: 20120608
  Serious: No
  Sender: FDA-Public Use
  Company Number: US-PFIZER INC-2012018550

PATIENT
  Sex: Female
  Weight: 72.562 kg

DRUGS (4)
  1. ZOMETA [Concomitant]
     Indication: METASTASES TO BONE
  2. ZOMETA [Concomitant]
     Indication: CARCINOID TUMOUR PULMONARY
     Dosage: UNK
  3. TORISEL [Suspect]
     Indication: METASTASES TO BONE
  4. TORISEL [Suspect]
     Indication: CARCINOID TUMOUR PULMONARY
     Dosage: UNK, WEEKLY
     Route: 041
     Dates: start: 20090701

REACTIONS (5)
  - LACRIMATION INCREASED [None]
  - BLISTER [None]
  - ONYCHOMADESIS [None]
  - ONYCHOCLASIS [None]
  - NAIL DISORDER [None]
